FAERS Safety Report 6112887-5 (Version None)
Quarter: 2009Q1

REPORT INFORMATION
  Report Type: 
  Country: None (occurrence: None)
  Receive Date: 20090312
  Receipt Date: 20090303
  Transmission Date: 20090719
  Serious: Yes (Other)
  Sender: FDA-Public Use
  Company Number: PHHY2009GB06294

PATIENT
  Sex: Male

DRUGS (1)
  1. CLOZARIL [Suspect]
     Indication: SCHIZOPHRENIA
     Dosage: 350 MG/DAY
     Route: 048
     Dates: start: 20081024

REACTIONS (7)
  - FUNGAL SKIN INFECTION [None]
  - HYPERHIDROSIS [None]
  - NAIL ATROPHY [None]
  - PRURITUS [None]
  - RASH [None]
  - SKIN ULCER [None]
  - VOMITING [None]
